FAERS Safety Report 5681040-1 (Version None)
Quarter: 2008Q1

REPORT INFORMATION
  Report Type: 
  Country: None (occurrence: None)
  Receive Date: 20080325
  Receipt Date: 20080312
  Transmission Date: 20080703
  Serious: Yes (Other)
  Sender: FDA-Public Use
  Company Number: 2007SP025553

PATIENT
  Age: 7 Year
  Sex: Male
  Weight: 26.7622 kg

DRUGS (1)
  1. DR. SCHOLL'S CLEAR AWAY WART REMOVER (40 PCT) [Suspect]
     Indication: DRUG USE FOR UNKNOWN INDICATION
     Dosage: ONCE;TOP
     Route: 061
     Dates: start: 20071214, end: 20071215

REACTIONS (5)
  - APPLICATION SITE REACTION [None]
  - PAIN [None]
  - PURULENCE [None]
  - SCAR [None]
  - WOUND [None]
